FAERS Safety Report 9236422 (Version 7)
Quarter: 2013Q3

REPORT INFORMATION
  Report Type: Spontaneous
  Country: IT (occurrence: IT)
  Receive Date: 20130417
  Receipt Date: 20130920
  Transmission Date: 20140515
  Serious: Yes (Death, Disabling)
  Sender: FDA-Public Use
  Company Number: PHHY2013IT036122

PATIENT
  Sex: Male

DRUGS (10)
  1. OXALIPLATIN SANDOZ [Suspect]
     Indication: ADENOCARCINOMA GASTRIC
     Dosage: 158 MG, CYCLIC
     Route: 042
     Dates: start: 20130212, end: 20130227
  2. HERCEPTIN [Suspect]
     Indication: ADENOCARCINOMA GASTRIC
     Dosage: 438 MG, CYCLIC
     Route: 042
     Dates: start: 20130212
  3. FLUOROURACIL [Concomitant]
     Dosage: 5952 MG, UNK
     Route: 042
     Dates: start: 20130212, end: 20130212
  4. ONDANSETRON [Concomitant]
     Indication: PREMEDICATION
     Dosage: 8 MG, UNK
     Route: 042
     Dates: start: 20130227, end: 20130227
  5. IVOR [Concomitant]
     Dosage: 5000 IU, QD
     Route: 058
  6. TRIMETON [Concomitant]
     Indication: PREMEDICATION
     Dosage: 1 U, UNK
     Route: 030
     Dates: start: 20130227, end: 20130227
  7. PEPTAZOL [Concomitant]
     Dosage: 40 MG, QD
     Route: 048
  8. ZESTRIL [Concomitant]
     Dosage: 20 MG, QD
     Route: 048
  9. LEDERFOLIN [Concomitant]
     Dosage: 375 MG, UNK
     Route: 042
     Dates: start: 20130212, end: 20130212
  10. SOLDESAM [Concomitant]
     Indication: PREMEDICATION
     Dosage: 16 MG, UNK
     Dates: start: 20130227, end: 20130227

REACTIONS (2)
  - Cardio-respiratory arrest [Fatal]
  - Coma [Fatal]
